FAERS Safety Report 19374242 (Version 2)
Quarter: 2021Q2

REPORT INFORMATION
  Report Type: Report from Study
  Country: None (occurrence: US)
  Receive Date: 20210603
  Receipt Date: 20210610
  Transmission Date: 20210717
  Serious: Yes (Hospitalization)
  Sender: FDA-Public Use
  Company Number: US-ABBVIE-21K-163-3926272-00

PATIENT
  Age: 67 Year
  Sex: Female
  Weight: 90.8 kg

DRUGS (1)
  1. RINVOQ [Suspect]
     Active Substance: UPADACITINIB
     Indication: RHEUMATOID ARTHRITIS
     Route: 048
     Dates: start: 202102, end: 20210503

REACTIONS (14)
  - Muscle spasms [Not Recovered/Not Resolved]
  - Stress [Unknown]
  - Insomnia [Recovered/Resolved]
  - Diarrhoea [Recovering/Resolving]
  - Pneumonia [Recovering/Resolving]
  - Discomfort [Recovered/Resolved]
  - Frequent bowel movements [Recovering/Resolving]
  - Sinusitis [Unknown]
  - Gastrointestinal sounds abnormal [Recovering/Resolving]
  - Hypersensitivity [Unknown]
  - Rheumatoid nodule [Not Recovered/Not Resolved]
  - Weight decreased [Unknown]
  - Restlessness [Recovered/Resolved]
  - Dysgeusia [Recovering/Resolving]

NARRATIVE: CASE EVENT DATE: 202102
